FAERS Safety Report 10031328 (Version 1)
Quarter: 2014Q1

REPORT INFORMATION
  Report Type: Spontaneous
  Country: US (occurrence: None)
  Receive Date: 20140306
  Receipt Date: 20140306
  Transmission Date: 20141002
  Serious: Yes (Hospitalization, Other)
  Sender: FDA-Public Use
  Company Number: 163-21880-12040039

PATIENT
  Age: 77 Year
  Sex: Female

DRUGS (7)
  1. REVLIMID [Suspect]
     Indication: PLASMA CELL MYELOMA
     Dosage: 1 IN 1 D
     Route: 048
     Dates: start: 20120305
  2. DEXAMETHASONE (DEXAMETHASONE) [Concomitant]
  3. MESTINON (PYRIDOSTIGMINE BROMIDE) (PYRIDOSTIGMINE BROMIDE) [Concomitant]
  4. ZOMETA (ZOLEDRONIC ACID) [Concomitant]
  5. CARAFATE (SUCRALFATE) TABLET, 1G [Concomitant]
  6. PRILOSEC (OMEPRAZOLE) [Concomitant]
  7. AUGMENTIN [Concomitant]

REACTIONS (15)
  - Cardiac failure congestive [None]
  - Diarrhoea [None]
  - Duodenal ulcer [None]
  - Urinary tract infection [None]
  - Drug dose omission [None]
  - Fatigue [None]
  - Miliaria [None]
  - Feeling abnormal [None]
  - Sensation of heaviness [None]
  - Dysgeusia [None]
  - Neuropathy peripheral [None]
  - Paraesthesia [None]
  - Musculoskeletal stiffness [None]
  - Local swelling [None]
  - Sinusitis [None]
